FAERS Safety Report 4960533-6 (Version None)
Quarter: 2006Q1

REPORT INFORMATION
  Report Type: 
  Country: None (occurrence: None)
  Receive Date: 20060331
  Receipt Date: 20060331
  Transmission Date: 20060701
  Serious: Yes (Life-Threatening, Hospitalization)
  Sender: FDA-Public Use
  Company Number: None

PATIENT
  Age: 65 Year
  Sex: Male
  Weight: 129.7287 kg

DRUGS (1)
  1. BORTEZOMIB    3MG [Suspect]
     Indication: MULTIPLE MYELOMA
     Dosage: 3MG  AS DIRECTED   IV
     Route: 042
     Dates: start: 20050725, end: 20050916

REACTIONS (1)
  - CRYPTOGENIC ORGANIZING PNEUMONIA [None]
